FAERS Safety Report 4859885-7 (Version None)
Quarter: 2005Q4

REPORT INFORMATION
  Report Type: 
  Country: None (occurrence: None)
  Receive Date: 20051215
  Receipt Date: 20051130
  Transmission Date: 20060501
  Serious: Yes (Death)
  Sender: FDA-Public Use
  Company Number: SUSI-2005-00838

PATIENT
  Age: 13 Year
  Sex: Male

DRUGS (2)
  1. ADDERALL 10 [Suspect]
     Indication: ABNORMAL BEHAVIOUR
     Dosage: 20 MG, ORAL
     Route: 048
     Dates: start: 20051001
  2. RISPERIDONE [Concomitant]

REACTIONS (1)
  - COMPLETED SUICIDE [None]
